FAERS Safety Report 4625222-6 (Version None)
Quarter: 2005Q2

REPORT INFORMATION
  Report Type: 
  Country: None (occurrence: None)
  Receive Date: 20050401
  Receipt Date: 20030407
  Transmission Date: 20051028
  Serious: Yes (Hospitalization, Other)
  Sender: FDA-Public Use
  Company Number: US-MERCK-0304USA00805

PATIENT
  Age: 56 Year
  Sex: Female
  Weight: 68 kg

DRUGS (8)
  1. VIOXX [Suspect]
     Indication: PSORIATIC ARTHROPATHY
     Route: 048
     Dates: start: 20010501
  2. DEPAKOTE [Concomitant]
     Route: 065
     Dates: end: 20020426
  3. MS CONTIN [Suspect]
     Indication: PAIN
     Route: 065
     Dates: start: 20010504, end: 20020514
  4. MS CONTIN [Suspect]
     Route: 065
     Dates: start: 20010504
  5. TEGRETOL [Concomitant]
     Route: 065
  6. ASPIRIN [Concomitant]
     Route: 065
  7. VITAMINS (UNSPECIFIED) [Concomitant]
     Route: 065
  8. MS CONTIN [Concomitant]
     Route: 048
     Dates: start: 20010504

REACTIONS (85)
  - ADVERSE EVENT [None]
  - AGITATION [None]
  - ALANINE AMINOTRANSFERASE INCREASED [None]
  - ALCOHOLISM [None]
  - ANTICONVULSANT DRUG LEVEL DECREASED [None]
  - ARTHRALGIA [None]
  - ASPARTATE AMINOTRANSFERASE INCREASED [None]
  - BALANCE DISORDER [None]
  - BELLIGERENCE [None]
  - BLOOD CHOLESTEROL INCREASED [None]
  - BLOOD POTASSIUM DECREASED [None]
  - BLOOD THYROID STIMULATING HORMONE INCREASED [None]
  - BODY TEMPERATURE DECREASED [None]
  - CHOLELITHIASIS [None]
  - COMPLEX PARTIAL SEIZURES [None]
  - CONFUSIONAL STATE [None]
  - CONSTIPATION [None]
  - CONTUSION [None]
  - DEAFNESS NEUROSENSORY [None]
  - DEPRESSED LEVEL OF CONSCIOUSNESS [None]
  - DEPRESSED MOOD [None]
  - DIARRHOEA [None]
  - DIZZINESS [None]
  - DRUG ERUPTION [None]
  - DRUG HYPERSENSITIVITY [None]
  - DRUG INEFFECTIVE [None]
  - DRUG LEVEL BELOW THERAPEUTIC [None]
  - DRUG LEVEL DECREASED [None]
  - DRUG SCREEN POSITIVE [None]
  - EAR DISCOMFORT [None]
  - EMOTIONAL DISTRESS [None]
  - ERYTHEMA [None]
  - FACTITIOUS DISORDER [None]
  - FALL [None]
  - FATIGUE [None]
  - FEELING ABNORMAL [None]
  - FOLLICULITIS [None]
  - GINGIVAL HYPERPLASIA [None]
  - GRAND MAL CONVULSION [None]
  - HEADACHE [None]
  - HEPATIC ENZYME INCREASED [None]
  - HEPATIC STEATOSIS [None]
  - HYPERLIPIDAEMIA [None]
  - HYPERNATRAEMIA [None]
  - HYPERTENSION [None]
  - HYPOACUSIS [None]
  - INJURY [None]
  - LACERATION [None]
  - LOW DENSITY LIPOPROTEIN INCREASED [None]
  - MENINGITIS [None]
  - MENTAL STATUS CHANGES [None]
  - MIDDLE EAR EFFUSION [None]
  - MUSCULOSKELETAL DISORDER [None]
  - MYOCARDIAL INFARCTION [None]
  - NAIL PITTING [None]
  - NASAL CAVITY CANCER [None]
  - NASAL POLYPS [None]
  - NECK PAIN [None]
  - OBSTRUCTIVE AIRWAYS DISORDER [None]
  - OSTEOPENIA [None]
  - OSTEOPOROSIS [None]
  - OTITIS MEDIA [None]
  - OVERDOSE [None]
  - PERIARTHRITIS [None]
  - PSORIASIS [None]
  - PYREXIA [None]
  - RADIUS FRACTURE [None]
  - RASH [None]
  - RESPIRATORY FAILURE [None]
  - SCAB [None]
  - SEPSIS [None]
  - SPINAL OSTEOARTHRITIS [None]
  - STUPOR [None]
  - SYNOVITIS [None]
  - TINNITUS [None]
  - TREATMENT NONCOMPLIANCE [None]
  - TREMOR [None]
  - TYMPANIC MEMBRANE DISORDER [None]
  - URINARY INCONTINENCE [None]
  - URINE KETONE BODY PRESENT [None]
  - VAGINAL INFECTION [None]
  - VERTIGO [None]
  - WEIGHT DECREASED [None]
  - WEIGHT INCREASED [None]
  - WRIST FRACTURE [None]
